FAERS Safety Report 15513891 (Version 1)
Quarter: 2018Q4

REPORT INFORMATION
  Report Type: Spontaneous
  Country: US (occurrence: US)
  Receive Date: 20181016
  Receipt Date: 20181016
  Transmission Date: 20190205
  Serious: No
  Sender: FDA-Public Use
  Company Number: US-AMGEN-USASP2018100008

PATIENT
  Age: 68 Year
  Sex: Female
  Weight: 77.9 kg

DRUGS (1)
  1. NEULASTA [Suspect]
     Active Substance: PEGFILGRASTIM
     Indication: NEUTROPENIA
     Dosage: 6 MG, AFTER CHEMO (MONTHLY)
     Route: 058
     Dates: start: 20180702

REACTIONS (3)
  - Application site erythema [Recovered/Resolved]
  - Application site haemorrhage [Recovered/Resolved]
  - Application site burn [Unknown]

NARRATIVE: CASE EVENT DATE: 201807
